FAERS Safety Report 6774383-1 (Version None)
Quarter: 2010Q2

REPORT INFORMATION
  Report Type: 
  Country: None (occurrence: None)
  Receive Date: 20100617
  Receipt Date: 20100608
  Transmission Date: 20101027
  Serious: Yes (Hospitalization, Other)
  Sender: FDA-Public Use
  Company Number: US-ASTRAZENECA-2010SE19923

PATIENT
  Sex: Female

DRUGS (24)
  1. SEROQUEL [Suspect]
     Indication: OBSESSIVE-COMPULSIVE DISORDER
     Route: 048
     Dates: start: 20060101
  2. SEROQUEL [Suspect]
     Indication: SLEEP DISORDER
     Route: 048
     Dates: start: 20060101
  3. SEROQUEL [Suspect]
     Indication: THINKING ABNORMAL
     Route: 048
     Dates: start: 20060101
  4. SEROQUEL [Suspect]
     Route: 048
  5. SEROQUEL [Suspect]
     Route: 048
  6. SEROQUEL [Suspect]
     Route: 048
  7. SEROQUEL [Suspect]
     Route: 048
  8. SEROQUEL [Suspect]
     Route: 048
  9. SEROQUEL [Suspect]
     Route: 048
  10. KLONOPIN [Concomitant]
     Route: 065
  11. GEODON [Concomitant]
     Route: 065
  12. LAMICTAL [Concomitant]
     Route: 065
  13. PROZAC [Concomitant]
     Route: 065
  14. CYMBALTA [Concomitant]
     Route: 065
  15. SYNTHROID [Concomitant]
     Route: 065
  16. HEADACHE MEDICATIONS [Concomitant]
     Route: 065
  17. UNITHROID [Concomitant]
     Route: 065
  18. LEVOTHYROXINE SODIUM [Concomitant]
     Route: 065
  19. CLONAZEPAM [Concomitant]
     Route: 065
  20. FLUOXETINE HCL [Concomitant]
     Route: 065
  21. ZALEPLON [Concomitant]
     Route: 065
  22. MOTRIN [Concomitant]
     Route: 065
  23. NAPROXIN [Concomitant]
     Route: 065
  24. ZALPEPLON [Concomitant]
     Route: 065

REACTIONS (8)
  - ABNORMAL DREAMS [None]
  - FATIGUE [None]
  - HOMICIDAL IDEATION [None]
  - HUNGER [None]
  - HYPOTHYROIDISM [None]
  - NIGHTMARE [None]
  - PSYCHOTIC DISORDER [None]
  - WEIGHT INCREASED [None]
